FAERS Safety Report 8607874-9 (Version None)
Quarter: 2012Q3

REPORT INFORMATION
  Report Type: 
  Country: None (occurrence: None)
  Receive Date: 20120821
  Receipt Date: 20120807
  Transmission Date: 20120928
  Serious: Yes (Other)
  Sender: FDA-Public Use
  Company Number: US-MYLANLABS-2012S1016412

PATIENT
  Age: 18 Year
  Sex: Male

DRUGS (7)
  1. RIFAMPICIN [Concomitant]
     Indication: OSTEOMYELITIS CHRONIC
     Route: 048
  2. CIPROFLOXACIN [Concomitant]
     Indication: STAPHYLOCOCCAL OSTEOMYELITIS
     Route: 048
  3. VANCOMYCIN [Suspect]
     Indication: STAPHYLOCOCCAL OSTEOMYELITIS
     Dosage: 13 MG/KG
     Route: 042
  4. VANCOMYCIN [Suspect]
     Dosage: 19 MG/KG
     Route: 042
  5. TELAVANCIN HYDROCHLORIDE [Suspect]
     Indication: STAPHYLOCOCCAL OSTEOMYELITIS
     Dosage: APPROXIMATELY 10 MG/KG/DAY
     Route: 041
  6. DAPTOMYCIN [Suspect]
     Indication: STAPHYLOCOCCAL OSTEOMYELITIS
     Route: 065
  7. MEROPENEM [Concomitant]
     Indication: OSTEOMYELITIS CHRONIC
     Route: 042

REACTIONS (7)
  - BLOOD CREATINE PHOSPHOKINASE INCREASED [None]
  - DECREASED APPETITE [None]
  - BONE MARROW FAILURE [None]
  - LEUKOPENIA [None]
  - DYSGEUSIA [None]
  - PRURITUS GENERALISED [None]
  - NEUTROPENIA [None]
